FAERS Safety Report 14482332 (Version 1)
Quarter: 2018Q1

REPORT INFORMATION
  Report Type: Spontaneous
  Country: US (occurrence: US)
  Receive Date: 20180202
  Receipt Date: 20180202
  Transmission Date: 20180509
  Serious: No
  Sender: FDA-Public Use
  Company Number: US-009507513-1801USA005368

PATIENT
  Age: 79 Year
  Sex: Female

DRUGS (16)
  1. PIOGLITAZONE. [Suspect]
     Active Substance: PIOGLITAZONE
     Dosage: 30 MG, 2 DAILY
     Dates: start: 2015
  2. ATORVASTATIN [Suspect]
     Active Substance: ATORVASTATIN
     Dosage: UNK
  3. VITAMIN B (UNSPECIFIED) [Concomitant]
     Active Substance: VITAMIN B
  4. GLIMEPIRIDE. [Suspect]
     Active Substance: GLIMEPIRIDE
     Dosage: 1 MG, 2  DAILY
     Dates: start: 20171024
  5. ECHINACEA (UNSPECIFIED) [Concomitant]
  6. ASTAXANTHIN [Concomitant]
  7. PRINIVIL [Suspect]
     Active Substance: LISINOPRIL
     Dosage: UNK
     Route: 048
     Dates: start: 2011
  8. OMEGA-3 MARINE TRIGLYCERIDES [Concomitant]
     Active Substance: FISH OIL
  9. XANTHOPHYLL [Concomitant]
  10. CHOLECALCIFEROL [Concomitant]
     Active Substance: CHOLECALCIFEROL
  11. ASHWAGANDHA [Concomitant]
     Active Substance: HERBALS
  12. CENTRUM SILVER WOMEN 50 PLUS [Suspect]
     Active Substance: MINERALS\VITAMINS
     Dosage: UNK
     Dates: start: 20171025
  13. METFORMIN HYDROCHLORIDE. [Suspect]
     Active Substance: METFORMIN HYDROCHLORIDE
     Dosage: 500 MG, 2 PERDAILY
     Dates: start: 20171024
  14. JANUMET [Suspect]
     Active Substance: METFORMIN HYDROCHLORIDE\SITAGLIPTIN PHOSPHATE
     Indication: DIABETES MELLITUS
     Dosage: UNK
     Route: 048
     Dates: start: 2015
  15. ASCORBIC ACID. [Concomitant]
     Active Substance: ASCORBIC ACID
  16. BIOTIN [Concomitant]
     Active Substance: BIOTIN

REACTIONS (6)
  - Gastroenteritis viral [Recovered/Resolved]
  - Glycosylated haemoglobin increased [Unknown]
  - Viral infection [Recovered/Resolved]
  - Tremor [Recovered/Resolved]
  - Food poisoning [Recovered/Resolved]
  - Hyperhidrosis [Recovered/Resolved]

NARRATIVE: CASE EVENT DATE: 201710
